FAERS Safety Report 4706051-1 (Version None)
Quarter: 2005Q2

REPORT INFORMATION
  Report Type: 
  Country: None (occurrence: None)
  Receive Date: 20050624
  Receipt Date: 20041118
  Transmission Date: 20051028
  Serious: No
  Sender: FDA-Public Use
  Company Number: 04H-163-0282576-00

PATIENT
  Age: 68 Year
  Sex: Male

DRUGS (3)
  1. HEPARIN SODIUM [Suspect]
     Dosage: 25,000 UNITS, CONTINUOUS;  8 ML/HR, CONTINUOUS;  5MG/HR W/VOLUME TO BE INFUSED OF 25ML
     Dates: start: 20041112, end: 20041112
  2. HEPARIN SODIUM [Suspect]
     Dosage: 25,000 UNITS, CONTINUOUS;  8 ML/HR, CONTINUOUS;  5MG/HR W/VOLUME TO BE INFUSED OF 25ML
     Dates: start: 20041112, end: 20041113
  3. HEPARIN SODIUM [Suspect]
     Dosage: 25,000 UNITS, CONTINUOUS;  8 ML/HR, CONTINUOUS;  5MG/HR W/VOLUME TO BE INFUSED OF 25ML
     Dates: start: 20041113, end: 20041113

REACTIONS (2)
  - ACTIVATED PARTIAL THROMBOPLASTIN TIME PROLONGED [None]
  - MEDICATION ERROR [None]
